FAERS Safety Report 5042055-X (Version None)
Quarter: 2006Q2

REPORT INFORMATION
  Report Type: 
  Country: None (occurrence: None)
  Receive Date: 20060630
  Receipt Date: 20060622
  Transmission Date: 20061013
  Serious: Yes (Disabling)
  Sender: FDA-Public Use
  Company Number: AR-2006-016386

PATIENT
  Age: 39 Year
  Sex: Female

DRUGS (2)
  1. MIRENA [Suspect]
     Indication: CONTRACEPTION
     Dosage: 20 UG/DAY CONT, INTRA-UTERINE
     Route: 015
     Dates: start: 20050801
  2. LEVOTIROXINE [Concomitant]

REACTIONS (1)
  - DYSTONIA [None]
